FAERS Safety Report 20847834 (Version 3)
Quarter: 2022Q2

REPORT INFORMATION
  Report Type: Report from Study
  Country: IT (occurrence: None)
  Receive Date: 20220519
  Receipt Date: 20220624
  Transmission Date: 20220721
  Serious: Yes (Hospitalization)
  Sender: FDA-Public Use
  Company Number: IT-ROCHE-3095636

PATIENT
  Age: 57 Year
  Sex: Female
  Weight: 66 kg

DRUGS (13)
  1. RITUXIMAB [Suspect]
     Active Substance: RITUXIMAB
     Indication: Chronic lymphocytic leukaemia
     Dosage: DOSE LAST STUDY DRUG ADMIN PRIOR AE WAS 885 MG ON 22/SEP/2021
     Route: 041
     Dates: start: 20210531
  2. CYCLOPHOSPHAMIDE [Suspect]
     Active Substance: CYCLOPHOSPHAMIDE
     Indication: Chronic lymphocytic leukaemia
     Dosage: DOSE LAST STUDY DRUG ADMINISTERED PRIOR AE WAS 331.88 MG ON 24/SEP/2021
     Route: 042
     Dates: start: 20210524
  3. FLUDARABINE PHOSPHATE [Suspect]
     Active Substance: FLUDARABINE PHOSPHATE
     Indication: Chronic lymphocytic leukaemia
     Dosage: DOSE LAST STUDY DRUG ADMINISTERED PRIOR AE WAS 33.19 MG ON 24/SEP/2021
     Route: 042
     Dates: start: 20210524
  4. LEVOFLOXACIN [Concomitant]
     Active Substance: LEVOFLOXACIN
     Indication: Viral infection
     Route: 048
     Dates: start: 20220412, end: 20220419
  5. DEURSIL [Concomitant]
     Active Substance: URSODIOL
     Route: 048
     Dates: start: 202101
  6. DEURSIL [Concomitant]
     Active Substance: URSODIOL
     Route: 048
     Dates: start: 201101
  7. VALACYCLOVIR HYDROCHLORIDE [Concomitant]
     Active Substance: VALACYCLOVIR HYDROCHLORIDE
     Indication: Viral infection
     Route: 048
     Dates: start: 20210526, end: 20220329
  8. VALACYCLOVIR HYDROCHLORIDE [Concomitant]
     Active Substance: VALACYCLOVIR HYDROCHLORIDE
     Route: 048
     Dates: start: 20220330
  9. LANSOPRAZOLE [Concomitant]
     Active Substance: LANSOPRAZOLE
     Indication: Abdominal pain upper
     Route: 048
     Dates: start: 20210823
  10. PREDNISONE [Concomitant]
     Active Substance: PREDNISONE
     Indication: Viral infection
     Route: 048
     Dates: start: 20220412, end: 20220419
  11. FILGRASTIM [Concomitant]
     Active Substance: FILGRASTIM
     Indication: Neutropenia
     Route: 058
     Dates: start: 20220426, end: 20220426
  12. DEXAMETHASONE [Concomitant]
     Active Substance: DEXAMETHASONE
     Indication: Prophylaxis
  13. ENOXAPARIN SODIUM [Concomitant]
     Active Substance: ENOXAPARIN SODIUM
     Indication: Prophylaxis

REACTIONS (1)
  - COVID-19 [Recovered/Resolved]

NARRATIVE: CASE EVENT DATE: 20220419
